FAERS Safety Report 7653208-6 (Version None)
Quarter: 2011Q3

REPORT INFORMATION
  Report Type: 
  Country: None (occurrence: None)
  Receive Date: 20110802
  Receipt Date: 20110802
  Transmission Date: 20111222
  Serious: Yes (Other)
  Sender: FDA-Public Use
  Company Number: None

PATIENT
  Age: 53 Year
  Sex: Female
  Weight: 53.5244 kg

DRUGS (1)
  1. LEVOFLOXACIN [Suspect]
     Indication: IMPAIRED HEALING
     Dosage: 500MG 1 PILL / DAY ORAL
     Route: 048
     Dates: start: 20110714, end: 20110717

REACTIONS (6)
  - JOINT WARMTH [None]
  - ARTHRALGIA [None]
  - GAIT DISTURBANCE [None]
  - JOINT SWELLING [None]
  - TENDON DISORDER [None]
  - NIGHTMARE [None]
